FAERS Safety Report 10064078 (Version 1)
Quarter: 2014Q2

REPORT INFORMATION
  Report Type: Spontaneous
  Country: US (occurrence: None)
  Receive Date: 20140404
  Receipt Date: 20140404
  Transmission Date: 20141212
  Serious: Yes (Death, Life-Threatening, Hospitalization, Disabling, Other)
  Sender: FDA-Public Use
  Company Number: 2014SGN00152

PATIENT
  Sex: 0

DRUGS (1)
  1. ADCETRIS ( BRENTUXIMAB VEDOTIN) INJECTION [Suspect]
     Indication: HODGKIN^S DISEASE
     Route: 042
     Dates: start: 20140206, end: 20140206

REACTIONS (4)
  - Gait disturbance [None]
  - Hyperglycaemia [None]
  - Asthenia [None]
  - Neuropathy peripheral [None]
